FAERS Safety Report 4595320-4 (Version None)
Quarter: 2005Q1

REPORT INFORMATION
  Report Type: 
  Country: None (occurrence: None)
  Receive Date: 20050225
  Receipt Date: 20050225
  Transmission Date: 20050727
  Serious: Yes (Death)
  Sender: FDA-Public Use
  Company Number: None

PATIENT
  Age: 6 Month
  Sex: Male
  Weight: 12.2 kg

DRUGS (1)
  1. ETOPOSIDE [Suspect]
     Dosage: ATYP CHOROID PLEX PAPIL

REACTIONS (7)
  - BRONCHIOLITIS [None]
  - DRUG WITHDRAWAL SYNDROME [None]
  - NAUSEA [None]
  - RESPIRATORY DISORDER [None]
  - RESPIRATORY FAILURE [None]
  - TREMOR [None]
  - VOMITING [None]
